FAERS Safety Report 8439394-9 (Version None)
Quarter: 2012Q2

REPORT INFORMATION
  Report Type: 
  Country: None (occurrence: None)
  Receive Date: 20120615
  Receipt Date: 20120613
  Transmission Date: 20120825
  Serious: Yes (Hospitalization, Other)
  Sender: FDA-Public Use
  Company Number: PHHY2012CN039678

PATIENT
  Age: 43 Year
  Sex: Female

DRUGS (3)
  1. DIOVAN [Suspect]
     Dosage: 80 MG , PER DAY
     Dates: start: 20120429, end: 20120505
  2. XIYANPING [Concomitant]
     Indication: NASOPHARYNGITIS
     Dates: start: 20091001
  3. DIOVAN [Suspect]
     Indication: HYPERTENSION
     Dosage: 80 MG, DAILY
     Dates: start: 20080101, end: 20091001

REACTIONS (7)
  - GALLBLADDER ENLARGEMENT [None]
  - CHOLELITHIASIS [None]
  - CHOLESTASIS [None]
  - LIVER INJURY [None]
  - RENAL IMPAIRMENT [None]
  - CHEST PAIN [None]
  - NASOPHARYNGITIS [None]
